FAERS Safety Report 9007560 (Version 1)
Quarter: 2013Q1

REPORT INFORMATION
  Report Type: Spontaneous
  Country: US (occurrence: US)
  Receive Date: 20130111
  Receipt Date: 20130111
  Transmission Date: 20140127
  Serious: Yes (Hospitalization)
  Sender: FDA-Public Use
  Company Number: US-009507513-0907USA03748

PATIENT
  Age: 73 Year
  Sex: Female

DRUGS (1)
  1. MONTELUKAST SODIUM [Suspect]
     Route: 048

REACTIONS (3)
  - Allergic granulomatous angiitis [Unknown]
  - Bronchospasm [Unknown]
  - Pneumonia [Unknown]
